FAERS Safety Report 7098019-8 (Version None)
Quarter: 2010Q4

REPORT INFORMATION
  Report Type: 
  Country: None (occurrence: None)
  Receive Date: 20101112
  Receipt Date: 20101018
  Transmission Date: 20110411
  Serious: No
  Sender: FDA-Public Use
  Company Number: US-BAYER-201037857NA

PATIENT
  Sex: Female

DRUGS (1)
  1. MIRENA [Suspect]
     Indication: CONTRACEPTION
     Route: 015
     Dates: start: 20090727, end: 20100920

REACTIONS (3)
  - AMENORRHOEA [None]
  - ENDOMETRITIS [None]
  - GENITAL HAEMORRHAGE [None]
